FAERS Safety Report 6389022-1 (Version None)
Quarter: 2009Q4

REPORT INFORMATION
  Report Type: 
  Country: None (occurrence: None)
  Receive Date: 20091001
  Receipt Date: 20090925
  Transmission Date: 20100525
  Serious: Yes (Other)
  Sender: FDA-Public Use
  Company Number: 538732

PATIENT
  Age: 51 Year
  Sex: Male

DRUGS (1)
  1. AURO-DRI [Suspect]
     Indication: EAR DISORDER
     Dosage: 4 TO 5 DROPS TO LEFT EAR X2
     Dates: start: 20090601, end: 20090606

REACTIONS (2)
  - HEARING IMPAIRED [None]
  - TINNITUS [None]
